FAERS Safety Report 7216283-9 (Version None)
Quarter: 2011Q1

REPORT INFORMATION
  Report Type: 
  Country: None (occurrence: None)
  Receive Date: 20110107
  Receipt Date: 20110104
  Transmission Date: 20110831
  Serious: Yes (Life-Threatening, Other)
  Sender: FDA-Public Use
  Company Number: AU-JNJFOC-20101208064

PATIENT
  Sex: Female
  Weight: 62 kg

DRUGS (2)
  1. DURAGESIC-100 [Suspect]
     Indication: PAIN
     Dosage: APPLIED 5 PATCHES OF 25UG/HR
     Route: 062
  2. DURAGESIC-100 [Suspect]
     Dosage: APPLIED 2 INSTEAD OF 1
     Route: 062

REACTIONS (5)
  - SOMNOLENCE [None]
  - VOMITING [None]
  - WRONG TECHNIQUE IN DRUG USAGE PROCESS [None]
  - VERTIGO [None]
  - DIZZINESS [None]
